FAERS Safety Report 21404469 (Version 1)
Quarter: 2022Q4

REPORT INFORMATION
  Report Type: Report from Study
  Country: ES (occurrence: ES)
  Receive Date: 20221003
  Receipt Date: 20221003
  Transmission Date: 20230112
  Serious: No
  Sender: FDA-Public Use
  Company Number: ES-GSK-ES2022GSK140535

PATIENT

DRUGS (1)
  1. SOTROVIMAB [Suspect]
     Active Substance: SOTROVIMAB
     Indication: COVID-19
     Dosage: 500 MG ADMINISTERED AS A SINGLE INTRAVENOUS INFUSION OVER 30 MINUTES

REACTIONS (1)
  - Pyrexia [Recovered/Resolved]
